FAERS Safety Report 4707783-1 (Version None)
Quarter: 2005Q2

REPORT INFORMATION
  Report Type: 
  Country: None (occurrence: None)
  Receive Date: 20050629
  Receipt Date: 20050419
  Transmission Date: 20051028
  Serious: No
  Sender: FDA-Public Use
  Company Number: 05P-163-0297778-00

PATIENT
  Age: 72 Year
  Sex: Female
  Weight: 74.8435 kg

DRUGS (7)
  1. HUMIRA [Suspect]
     Indication: RHEUMATOID ARTHRITIS
     Dosage: 40 MG, 1 IN 2 WK, SUBCUTANEOUS
     Route: 058
     Dates: start: 20030101, end: 20050414
  2. ATENOLOL [Concomitant]
  3. FOLIC ACID [Concomitant]
  4. METHOTREXATE [Concomitant]
  5. TRIAMTERENE [Concomitant]
  6. RANITIDINE HYDROCHLORIDE [Concomitant]
  7. NAPROXEN [Concomitant]

REACTIONS (4)
  - COUGH [None]
  - DIZZINESS [None]
  - NASOPHARYNGITIS [None]
  - PHARYNGOLARYNGEAL PAIN [None]
